FAERS Safety Report 8466208-3 (Version None)
Quarter: 2012Q2

REPORT INFORMATION
  Report Type: 
  Country: None (occurrence: None)
  Receive Date: 20120620
  Receipt Date: 20120620
  Transmission Date: 20120825
  Serious: Yes (Disabling, Other)
  Sender: FDA-Public Use
  Company Number: None

PATIENT
  Sex: Female

DRUGS (3)
  1. PRILOSEC [Concomitant]
  2. ZICAM RITE AID [Suspect]
     Indication: OROPHARYNGEAL PAIN
     Dosage: EVERY 3 HOURS PO
     Route: 048
     Dates: start: 20120618, end: 20120619
  3. NUVARING [Concomitant]

REACTIONS (2)
  - VOMITING [None]
  - AGEUSIA [None]
